FAERS Safety Report 18559496 (Version 1)
Quarter: 2020Q4

REPORT INFORMATION
  Report Type: Spontaneous
  Country: US (occurrence: US)
  Receive Date: 20201128
  Receipt Date: 20201128
  Transmission Date: 20210114
  Serious: Yes (Disabling)
  Sender: FDA-Public Use
  Company Number: None

PATIENT
  Age: 67 Year
  Sex: Female
  Weight: 107.1 kg

DRUGS (9)
  1. APIXABAN [Concomitant]
     Active Substance: APIXABAN
  2. ALPAZOLAM [Concomitant]
     Active Substance: ALPRAZOLAM
  3. LISINOPRIL FAMOTIDINE [Concomitant]
  4. VITAMIN D [Concomitant]
     Active Substance: VITAMIN D NOS
  5. REPATHA [Suspect]
     Active Substance: EVOLOCUMAB
     Indication: LIPIDS INCREASED
     Dosage: ?          QUANTITY:1 INJECTION(S);OTHER FREQUENCY:EVERY 2 WEEKS;?
     Route: 058
     Dates: start: 20200901, end: 20201124
  6. METOPROLOL SUCCINATE. [Concomitant]
     Active Substance: METOPROLOL SUCCINATE
  7. FUROSEMIDE. [Concomitant]
     Active Substance: FUROSEMIDE
  8. LEXAPRO [Concomitant]
     Active Substance: ESCITALOPRAM OXALATE
  9. ALDACTONE [Concomitant]
     Active Substance: SPIRONOLACTONE

REACTIONS (6)
  - Pain [None]
  - Arthralgia [None]
  - Fatigue [None]
  - Headache [None]
  - Amnesia [None]
  - Memory impairment [None]

NARRATIVE: CASE EVENT DATE: 20201124
